FAERS Safety Report 5525623-8 (Version None)
Quarter: 2007Q4

REPORT INFORMATION
  Report Type: 
  Country: None (occurrence: None)
  Receive Date: 20071126
  Receipt Date: 20071113
  Transmission Date: 20080405
  Serious: Yes (Hospitalization)
  Sender: FDA-Public Use
  Company Number: FR-ROCHE-531573

PATIENT
  Age: 32 Year
  Sex: Female
  Weight: 80 kg

DRUGS (7)
  1. APRANAX [Suspect]
     Indication: RHEUMATOID ARTHRITIS
     Route: 048
  2. LOPERAMIDE HCL [Suspect]
     Indication: DIARRHOEA
     Dosage: DRUG NAME: CHLORHYDRATE DE LOPERAMIDE
     Route: 048
     Dates: start: 20070922, end: 20070925
  3. ACETAMINOPHEN [Suspect]
     Indication: RHEUMATOID ARTHRITIS
     Route: 048
     Dates: end: 20070927
  4. EUPANTOL [Suspect]
     Indication: DRUG USE FOR UNKNOWN INDICATION
     Route: 048
     Dates: end: 20070927
  5. CORTANCYL [Suspect]
     Indication: RHEUMATOID ARTHRITIS
     Route: 048
  6. ARAVA [Suspect]
     Indication: RHEUMATOID ARTHRITIS
     Dosage: TDD: 1 DOSE
     Route: 048
  7. ENBREL [Suspect]
     Indication: RHEUMATOID ARTHRITIS
     Dosage: DOSE; 50 MG EVERY WEEK.
     Route: 058
     Dates: start: 20070830, end: 20070920

REACTIONS (5)
  - CHEST PAIN [None]
  - ERYTHEMA NODOSUM [None]
  - MOUTH ULCERATION [None]
  - TACHYCARDIA [None]
  - UVEITIS [None]
